FAERS Safety Report 6050471-2 (Version None)
Quarter: 2009Q1

REPORT INFORMATION
  Report Type: 
  Country: None (occurrence: None)
  Receive Date: 20090126
  Receipt Date: 20090114
  Transmission Date: 20090719
  Serious: Yes (Other)
  Sender: FDA-Public Use
  Company Number: PHEH2009US00796

PATIENT
  Sex: Female

DRUGS (2)
  1. DIOVAN [Suspect]
     Dosage: 80 MG
     Dates: start: 20090101
  2. OXYGEN [Concomitant]
     Indication: ASTHMA

REACTIONS (6)
  - ABDOMINAL PAIN UPPER [None]
  - COORDINATION ABNORMAL [None]
  - DEPRESSION [None]
  - DYSPNOEA [None]
  - FATIGUE [None]
  - MYALGIA [None]
